FAERS Safety Report 10163631 (Version 1)
Quarter: 2014Q2

REPORT INFORMATION
  Report Type: Spontaneous
  Country: BR (occurrence: BR)
  Receive Date: 20140509
  Receipt Date: 20140509
  Transmission Date: 20141212
  Serious: Yes (Death, Other)
  Sender: FDA-Public Use
  Company Number: BR-CUBIST PHARMACEUTICAL, INC.-2014CBST000685

PATIENT
  Sex: 0

DRUGS (6)
  1. CUBICIN [Suspect]
     Indication: STAPHYLOCOCCAL INFECTION
     Dosage: 6 MG/KG, QD
     Route: 042
  2. MEROPENEM [Concomitant]
     Indication: PRODUCT USED FOR UNKNOWN INDICATION
     Dosage: UNK, UNK UNK
     Route: 065
  3. LEVOFLOXACIN [Concomitant]
     Indication: PRODUCT USED FOR UNKNOWN INDICATION
     Dosage: UNK, UNK UNK
     Route: 065
  4. LINEZOLID [Concomitant]
     Indication: PRODUCT USED FOR UNKNOWN INDICATION
     Dosage: UNK, UNK UNK
     Route: 065
  5. POLYMYXIN B SULFATE [Concomitant]
     Indication: PRODUCT USED FOR UNKNOWN INDICATION
     Dosage: UNK, UNK UNK
     Route: 065
  6. AMPHOTERICIN B [Concomitant]
     Indication: PRODUCT USED FOR UNKNOWN INDICATION
     Dosage: UNK, UNK UNK
     Route: 065

REACTIONS (10)
  - Death [Fatal]
  - Multi-organ failure [Unknown]
  - Respiratory failure [Unknown]
  - Enterococcal infection [Unknown]
  - Stenotrophomonas infection [Unknown]
  - Klebsiella infection [Unknown]
  - Acinetobacter infection [Unknown]
  - Candida infection [Unknown]
  - Oral disorder [Unknown]
  - Pyrexia [Unknown]
